FAERS Safety Report 15465680 (Version 3)
Quarter: 2025Q2

REPORT INFORMATION
  Report Type: Report from Study
  Country: US (occurrence: US)
  Receive Date: 20181004
  Receipt Date: 20250505
  Transmission Date: 20250716
  Serious: Yes (Hospitalization, Other)
  Sender: TAKEDA
  Company Number: US-SHIRE-US201837456

PATIENT
  Age: 32 Year
  Sex: Female

DRUGS (3)
  1. FIRAZYR [Suspect]
     Active Substance: ICATIBANT ACETATE
     Indication: Product used for unknown indication
  2. FIRAZYR [Suspect]
     Active Substance: ICATIBANT ACETATE
  3. LANADELUMAB [Suspect]
     Active Substance: LANADELUMAB
     Indication: Hereditary angioedema
     Dosage: 300 MILLIGRAM, Q2WEEKS

REACTIONS (8)
  - Cardiac arrest [Unknown]
  - Thrombosis [Unknown]
  - Food allergy [Unknown]
  - Rib fracture [Unknown]
  - Feeding disorder [Unknown]
  - Weight decreased [Unknown]
  - Hereditary angioedema [Unknown]
  - Injection site urticaria [Unknown]

NARRATIVE: CASE EVENT DATE: 20180401
